FAERS Safety Report 22011269 (Version 1)
Quarter: 2023Q1

REPORT INFORMATION
  Report Type: Spontaneous
  Country: FR (occurrence: FR)
  Receive Date: 20230220
  Receipt Date: 20230220
  Transmission Date: 20230418
  Serious: Yes (Other)
  Sender: FDA-Public Use
  Company Number: None

PATIENT
  Age: 74 Year
  Sex: Male

DRUGS (6)
  1. PRAVASTATIN [Suspect]
     Active Substance: PRAVASTATIN
     Indication: Hypercholesterolaemia
     Dosage: UNK
     Route: 048
     Dates: start: 2013, end: 2017
  2. RABEPRAZOLE SODIUM [Concomitant]
     Active Substance: RABEPRAZOLE SODIUM
     Dosage: UNK
     Route: 065
  3. HYDREA [Concomitant]
     Active Substance: HYDROXYUREA
     Dosage: UNK
     Route: 065
  4. AVODART [Concomitant]
     Active Substance: DUTASTERIDE
     Dosage: UNK
     Route: 065
  5. KARDEGIC [Concomitant]
     Active Substance: ASPIRIN DL-LYSINE
     Dosage: UNK
     Route: 065
  6. VERAPAMIL HYDROCHLORIDE [Concomitant]
     Active Substance: VERAPAMIL HYDROCHLORIDE
     Dosage: UNK
     Route: 065

REACTIONS (2)
  - Unmasking of previously unidentified disease [Not Recovered/Not Resolved]
  - Myasthenia gravis [Recovered/Resolved]

NARRATIVE: CASE EVENT DATE: 20170101
